FAERS Safety Report 23307421 (Version 5)
Quarter: 2024Q1

REPORT INFORMATION
  Report Type: Spontaneous
  Country: TR (occurrence: TR)
  Receive Date: 20231218
  Receipt Date: 20240307
  Transmission Date: 20240410
  Serious: Yes (Life-Threatening, Hospitalization, Other)
  Sender: FDA-Public Use
  Company Number: TR-002147023-NVSC2023TR267377

PATIENT
  Sex: Female

DRUGS (3)
  1. TRILEPTAL [Suspect]
     Active Substance: OXCARBAZEPINE
     Indication: Epilepsy
     Dosage: 1 DOSAGE FORM, TID (1 TABLET IN EVERY 8 HOURS) FOR 5-6 YEARS
     Route: 065
  2. LEVETIRACETAM [Concomitant]
     Active Substance: LEVETIRACETAM
     Indication: Product used for unknown indication
     Dosage: UNK
     Route: 065
  3. CLONAZEPAM [Concomitant]
     Active Substance: CLONAZEPAM
     Indication: Product used for unknown indication
     Dosage: UNK
     Route: 065

REACTIONS (11)
  - Coma [Not Recovered/Not Resolved]
  - Eye haemorrhage [Unknown]
  - Eating disorder [Unknown]
  - Weight decreased [Unknown]
  - Dermatitis [Unknown]
  - Memory impairment [Unknown]
  - Speech disorder [Not Recovered/Not Resolved]
  - Sleep disorder [Unknown]
  - Emotional distress [Unknown]
  - Product dose omission in error [Unknown]
  - General physical health deterioration [Unknown]
